FAERS Safety Report 7962557-3 (Version None)
Quarter: 2011Q4

REPORT INFORMATION
  Report Type: 
  Country: None (occurrence: None)
  Receive Date: 20111207
  Receipt Date: 20111107
  Transmission Date: 20120403
  Serious: Yes (Hospitalization)
  Sender: FDA-Public Use
  Company Number: FR-GLAXOSMITHKLINE-Z0012721A

PATIENT
  Sex: Female
  Weight: 75 kg

DRUGS (2)
  1. PAZOPANIB [Suspect]
     Indication: OVARIAN CANCER
     Dosage: 800MG PER DAY
     Route: 048
     Dates: start: 20100429
  2. ARIXTRA [Concomitant]
     Indication: PULMONARY EMBOLISM
     Route: 042
     Dates: start: 20111104

REACTIONS (1)
  - EMBOLISM [None]
